FAERS Safety Report 6171609-2 (Version None)
Quarter: 2009Q2

REPORT INFORMATION
  Report Type: 
  Country: None (occurrence: None)
  Receive Date: 20090429
  Receipt Date: 20090427
  Transmission Date: 20091009
  Serious: Yes (Other)
  Sender: FDA-Public Use
  Company Number: US-BRISTOL-MYERS SQUIBB COMPANY-14602833

PATIENT
  Sex: Male

DRUGS (1)
  1. VIDEX [Suspect]
     Dosage: VIDEX EC

REACTIONS (1)
  - RETINAL DETACHMENT [None]
